FAERS Safety Report 5197303-2 (Version None)
Quarter: 2007Q1

REPORT INFORMATION
  Report Type: 
  Country: None (occurrence: None)
  Receive Date: 20070103
  Receipt Date: 20061221
  Transmission Date: 20070707
  Serious: Yes (Hospitalization)
  Sender: FDA-Public Use
  Company Number: HQWYE770116NOV06

PATIENT
  Sex: Female
  Weight: 45 kg

DRUGS (10)
  1. ENBREL [Suspect]
     Indication: RHEUMATOID ARTHRITIS
     Route: 058
     Dates: start: 20061018, end: 20061021
  2. KETOPROFEN [Concomitant]
  3. AMLODIPINE BESYLATE [Concomitant]
     Indication: DRUG USE FOR UNKNOWN INDICATION
     Route: 048
  4. MERISLON [Concomitant]
     Route: 048
  5. TAKEPRON [Concomitant]
     Route: 048
  6. LOXONIN [Concomitant]
     Route: 048
  7. MUCOSTA [Concomitant]
     Route: 048
  8. ZOLPIDEM TARTRATE [Concomitant]
     Route: 048
  9. RIMATIL [Concomitant]
     Indication: RHEUMATOID ARTHRITIS
     Route: 048
     Dates: start: 20011225
  10. PREDNISOLONE [Concomitant]
     Indication: RHEUMATOID ARTHRITIS
     Route: 048

REACTIONS (4)
  - ARRHYTHMIA [None]
  - HEART RATE INCREASED [None]
  - HYPERTENSION [None]
  - SUPRAVENTRICULAR EXTRASYSTOLES [None]
